FAERS Safety Report 4546592-3 (Version None)
Quarter: 2005Q1

REPORT INFORMATION
  Report Type: 
  Country: None (occurrence: None)
  Receive Date: 20050103
  Receipt Date: 20041214
  Transmission Date: 20050727
  Serious: Yes (Death, Hospitalization)
  Sender: FDA-Public Use
  Company Number: AU_041208231

PATIENT
  Age: 43 Year
  Sex: Female

DRUGS (5)
  1. OLANZAPINE [Suspect]
     Indication: ABNORMAL BEHAVIOUR
     Dosage: 30 MG/1 DAY
     Route: 048
  2. VALIUM [Concomitant]
  3. BENZTROPINE MESYLATE [Concomitant]
  4. ANTENEX (DIAZEPAM) [Concomitant]
  5. ZOLOFT [Concomitant]

REACTIONS (9)
  - DRUG TOXICITY [None]
  - INFLUENZA LIKE ILLNESS [None]
  - INTERSTITIAL LUNG DISEASE [None]
  - PULMONARY ALVEOLAR HAEMORRHAGE [None]
  - PULMONARY CONGESTION [None]
  - PULMONARY FIBROSIS [None]
  - RESPIRATORY ARREST [None]
  - SEDATION [None]
  - TERATOMA [None]
